FAERS Safety Report 8361168-8 (Version None)
Quarter: 2012Q2

REPORT INFORMATION
  Report Type: 
  Country: None (occurrence: None)
  Receive Date: 20120515
  Receipt Date: 20110705
  Transmission Date: 20120825
  Serious: No
  Sender: FDA-Public Use
  Company Number: US-ALEXION-A201101019

PATIENT
  Sex: Female

DRUGS (5)
  1. FOLIC ACID [Concomitant]
     Indication: ANAEMIA
     Dosage: 0.8 MG QD
  2. SOLIRIS [Suspect]
     Indication: PAROXYSMAL NOCTURNAL HAEMOGLOBINURIA
     Dosage: 600 MG QW
     Route: 042
     Dates: start: 20091202, end: 20091223
  3. SOLIRIS [Suspect]
     Dosage: 900 MG Q2W
     Route: 042
     Dates: start: 20091230
  4. MULTI-VITAMIN [Concomitant]
     Dosage: UNK QD
  5. VITAMIN D [Concomitant]
     Dosage: UNK QD

REACTIONS (2)
  - COUGH [None]
  - SINUS CONGESTION [None]
